FAERS Safety Report 7001689-3 (Version None)
Quarter: 2010Q3

REPORT INFORMATION
  Report Type: 
  Country: None (occurrence: None)
  Receive Date: 20100920
  Receipt Date: 20100913
  Transmission Date: 20110219
  Serious: Yes (Hospitalization)
  Sender: FDA-Public Use
  Company Number: IT-PFIZER INC-2010115331

PATIENT
  Age: 71 Year
  Sex: Female

DRUGS (2)
  1. TORVAST [Suspect]
     Dosage: 10 MG, UNK
  2. SOTALEX [Concomitant]
     Indication: TACHYCARDIA
     Dosage: 80 MG, UNK

REACTIONS (2)
  - DIZZINESS [None]
  - HEADACHE [None]
